FAERS Safety Report 8502224-0 (Version None)
Quarter: 2012Q3

REPORT INFORMATION
  Report Type: 
  Country: None (occurrence: None)
  Receive Date: 20120711
  Receipt Date: 20120703
  Transmission Date: 20120928
  Serious: Yes (Other)
  Sender: FDA-Public Use
  Company Number: PHHY2012US056999

PATIENT
  Age: 28 Month
  Sex: Male

DRUGS (1)
  1. LEVETIRACETAM [Suspect]
     Dosage: 20 MG/KG PER DAY

REACTIONS (6)
  - ENCEPHALITIS AUTOIMMUNE [None]
  - MOOD ALTERED [None]
  - AGGRESSION [None]
  - MUSCLE TWITCHING [None]
  - APHASIA [None]
  - CRYING [None]
